FAERS Safety Report 9881590 (Version 1)
Quarter: 2014Q1

REPORT INFORMATION
  Report Type: Report from Study
  Country: JP (occurrence: JP)
  Receive Date: 20140207
  Receipt Date: 20140207
  Transmission Date: 20141002
  Serious: Yes (Other)
  Sender: FDA-Public Use
  Company Number: JP-ABBVIE-14P-087-1198389-00

PATIENT
  Age: 38 Year
  Sex: Female
  Weight: 45 kg

DRUGS (2)
  1. LEUPRORELIN DEPOT [Suspect]
     Indication: BREAST CANCER FEMALE
     Route: 058
     Dates: start: 20120201
  2. TAMOXIFEN CITRATE [Concomitant]
     Indication: PRODUCT USED FOR UNKNOWN INDICATION
     Dates: start: 20120104

REACTIONS (1)
  - Metastases to bone [Not Recovered/Not Resolved]
